FAERS Safety Report 9750085 (Version 1)
Quarter: 2013Q4

REPORT INFORMATION
  Report Type: Spontaneous
  Country: US (occurrence: US)
  Receive Date: 20131212
  Receipt Date: 20131212
  Transmission Date: 20140711
  Serious: Yes (Other)
  Sender: FDA-Public Use
  Company Number: US-GILEAD-US-CVT-090835

PATIENT
  Age: 59 Year
  Sex: Female

DRUGS (1)
  1. RANEXA [Suspect]
     Indication: ATRIAL FIBRILLATION

REACTIONS (1)
  - Drug ineffective for unapproved indication [Unknown]
